FAERS Safety Report 14496725 (Version 1)
Quarter: 2018Q1

REPORT INFORMATION
  Report Type: Report from Study
  Country: GB (occurrence: GB)
  Receive Date: 20180207
  Receipt Date: 20180207
  Transmission Date: 20180509
  Serious: Yes (Other)
  Sender: FDA-Public Use
  Company Number: GB-ORION CORPORATION ORION PHARMA-TREX2018-0353

PATIENT
  Age: 71 Year
  Sex: Female

DRUGS (3)
  1. METHOTREXATE (TRADE NAME UNKNOWN) [Suspect]
     Active Substance: METHOTREXATE
     Route: 065
  2. BENEPALI [Suspect]
     Active Substance: ETANERCEPT
     Route: 058
  3. BENEPALI [Suspect]
     Active Substance: ETANERCEPT
     Indication: RHEUMATOID ARTHRITIS
     Route: 058

REACTIONS (5)
  - Oral herpes [Not Recovered/Not Resolved]
  - Spinal operation [Unknown]
  - Mouth ulceration [Not Recovered/Not Resolved]
  - Mobility decreased [Unknown]
  - Fatigue [Not Recovered/Not Resolved]
